FAERS Safety Report 12100569 (Version 1)
Quarter: 2016Q1

REPORT INFORMATION
  Report Type: Spontaneous
  Country: JP (occurrence: JP)
  Receive Date: 20160222
  Receipt Date: 20160222
  Transmission Date: 20160526
  Serious: Yes (Death, Hospitalization)
  Sender: FDA-Public Use
  Company Number: JP-ACTELION-A-CH2016-131432

PATIENT
  Age: 86 Year
  Sex: Female

DRUGS (4)
  1. FUROSEMIDE. [Concomitant]
     Active Substance: FUROSEMIDE
  2. OPSUMIT [Suspect]
     Active Substance: MACITENTAN
     Indication: PULMONARY ARTERIAL HYPERTENSION
     Dosage: 10 MG, QD
     Route: 048
     Dates: start: 20151128, end: 20151201
  3. BERASUS [Suspect]
     Active Substance: BERAPROST SODIUM
     Indication: PULMONARY ARTERIAL HYPERTENSION
     Dosage: 20 ?G, TID
     Route: 048
     Dates: start: 2012, end: 20151201
  4. DOPAMINE [Concomitant]
     Active Substance: DOPAMINE\DOPAMINE HYDROCHLORIDE

REACTIONS (4)
  - Pulmonary oedema [Fatal]
  - Hypoxia [Fatal]
  - Cardiac failure [Fatal]
  - Blood pressure systolic decreased [Fatal]

NARRATIVE: CASE EVENT DATE: 20151130
